FAERS Safety Report 7379846-6 (Version None)
Quarter: 2011Q1

REPORT INFORMATION
  Report Type: 
  Country: None (occurrence: None)
  Receive Date: 20110324
  Receipt Date: 20110324
  Transmission Date: 20110831
  Serious: No
  Sender: FDA-Public Use
  Company Number: None

PATIENT
  Age: 64 Year
  Sex: Male
  Weight: 95.7 kg

DRUGS (1)
  1. TETRACYCLINE [Suspect]
     Indication: HELICOBACTER GASTRITIS
     Dosage: 500 MG QD PO
     Route: 048
     Dates: start: 20101222, end: 20101230

REACTIONS (3)
  - FAECES DISCOLOURED [None]
  - RASH [None]
  - GASTROINTESTINAL DISORDER [None]
